FAERS Safety Report 5188556-5 (Version None)
Quarter: 2006Q4

REPORT INFORMATION
  Report Type: 
  Country: None (occurrence: None)
  Receive Date: 20061214
  Receipt Date: 20061128
  Transmission Date: 20070319
  Serious: Yes (Hospitalization)
  Sender: FDA-Public Use
  Company Number: US-2006-033715

PATIENT
  Age: 76 Year
  Sex: Female
  Weight: 57.6 kg

DRUGS (8)
  1. BETASERON [Suspect]
     Indication: RELAPSING-REMITTING MULTIPLE SCLEROSIS
     Dosage: SEE IMAGE
     Route: 058
     Dates: start: 20030927, end: 20050923
  2. BETASERON [Suspect]
     Indication: RELAPSING-REMITTING MULTIPLE SCLEROSIS
     Dosage: SEE IMAGE
     Route: 058
     Dates: start: 20051127, end: 20060203
  3. BETASERON [Suspect]
     Indication: RELAPSING-REMITTING MULTIPLE SCLEROSIS
     Dosage: SEE IMAGE
     Route: 058
     Dates: start: 20060501
  4. LEVOTHYROXINE SODIUM [Concomitant]
  5. PREMARIN [Concomitant]
  6. EFFEXOR XR [Concomitant]
  7. LISINOPRIL [Concomitant]
  8. CITALOPRAM HYDROBROMIDE [Concomitant]

REACTIONS (6)
  - ASTHENIA [None]
  - CHOLELITHIASIS [None]
  - DIZZINESS [None]
  - PAIN [None]
  - PALLOR [None]
  - RASH [None]
